FAERS Safety Report 17229168 (Version 1)
Quarter: 2019Q4

REPORT INFORMATION
  Report Type: Spontaneous
  Country: US (occurrence: US)
  Receive Date: 20191210
  Receipt Date: 20191210
  Transmission Date: 20200122
  Serious: Yes (Other)
  Sender: FDA-Public Use
  Company Number: None

PATIENT
  Age: 79 Year
  Sex: Male

DRUGS (2)
  1. DALFAMPRIDINE 10MG [Suspect]
     Active Substance: DALFAMPRIDINE
     Route: 048
     Dates: start: 20190327
  2. TECFIDERA [Suspect]
     Active Substance: DIMETHYL FUMARATE
     Route: 048
     Dates: start: 20180403, end: 20191210

REACTIONS (2)
  - Therapy cessation [None]
  - White blood cell count [None]
